APPROVED DRUG PRODUCT: PHENYLEPHRINE HYDROCHLORIDE
Active Ingredient: PHENYLEPHRINE HYDROCHLORIDE
Strength: 50MG/5ML (10MG/ML)
Dosage Form/Route: SOLUTION;INTRAVENOUS
Application: A218412 | Product #002 | TE Code: AP1
Applicant: HAINAN POLY PHARM CO LTD
Approved: Mar 14, 2024 | RLD: No | RS: No | Type: RX